FAERS Safety Report 9095154 (Version 6)
Quarter: 2014Q1

REPORT INFORMATION
  Report Type: Report from Study
  Country: US (occurrence: US)
  Receive Date: 20130220
  Receipt Date: 20140304
  Transmission Date: 20141002
  Serious: Yes (Hospitalization, Other)
  Sender: FDA-Public Use
  Company Number: PHEH2013US004066

PATIENT
  Age: 80 Year
  Sex: Male

DRUGS (15)
  1. TASIGNA [Suspect]
     Indication: CHRONIC MYELOID LEUKAEMIA
     Dosage: 400 MG, QD
     Route: 048
     Dates: start: 20090306
  2. TASIGNA [Interacting]
     Dosage: 400 MG, DAILY
     Route: 048
     Dates: start: 20120209
  3. ALBUTEROL SULFATE TABLETS USP [Interacting]
     Dosage: UNK UKN, UNK
  4. ZITHROMAX Z-PAK [Interacting]
     Indication: UPPER RESPIRATORY TRACT INFECTION
  5. SPIRIVA [Concomitant]
     Indication: CHRONIC OBSTRUCTIVE PULMONARY DISEASE
     Dosage: 18 UG, DAILY
  6. SPIRIVA [Concomitant]
     Indication: ASTHMA
  7. ADVAIR [Concomitant]
     Indication: ASTHMA
     Dosage: 1 PUFF FOUR TIMES AS DIRECTED
  8. ADVAIR [Concomitant]
     Indication: CHRONIC OBSTRUCTIVE PULMONARY DISEASE
  9. ULORIC [Concomitant]
     Indication: GOUT
     Dosage: 40 MG, DAILY
  10. LISINOPRIL [Concomitant]
     Indication: HYPERTENSION
     Dosage: 25 MG, DAILY
  11. LIPITOR [Concomitant]
     Indication: CORONARY ARTERY DISEASE
     Dosage: 10 MG, DAILY
  12. LIPITOR [Concomitant]
     Indication: DYSLIPIDAEMIA
  13. FUROSEMIDE [Concomitant]
     Indication: HYPERTENSION
     Dosage: 20 MG, DAILY
  14. COUMADINE [Concomitant]
     Indication: HYPERTENSION
     Dosage: 6 MG, DAILY
  15. PROAIR HFA [Concomitant]
     Indication: CHRONIC OBSTRUCTIVE PULMONARY DISEASE
     Dosage: UNK UKN, UNK

REACTIONS (11)
  - Chronic obstructive pulmonary disease [Unknown]
  - Productive cough [Recovered/Resolved]
  - Sputum discoloured [Recovered/Resolved]
  - Dyspnoea [Recovered/Resolved]
  - Bronchitis [Unknown]
  - Upper respiratory tract infection [Unknown]
  - Gout [Unknown]
  - Dementia [Not Recovered/Not Resolved]
  - Memory impairment [Not Recovered/Not Resolved]
  - Amnesia [Not Recovered/Not Resolved]
  - Drug interaction [Unknown]
